FAERS Safety Report 7442095-7 (Version None)
Quarter: 2011Q2

REPORT INFORMATION
  Report Type: 
  Country: None (occurrence: None)
  Receive Date: 20110428
  Receipt Date: 20101213
  Transmission Date: 20111010
  Serious: Yes (Hospitalization, Other)
  Sender: FDA-Public Use
  Company Number: US-BAYER-201027634NA

PATIENT
  Age: 46 Year
  Sex: Female
  Weight: 56.689 kg

DRUGS (11)
  1. DOXYCYCLINE [Concomitant]
     Dates: start: 20060525
  2. YAZ [Suspect]
     Indication: MENSTRUAL CYCLE MANAGEMENT
  3. XOPENEX [Concomitant]
     Dosage: UNK, INHALED
     Dates: start: 20050722
  4. YASMIN [Suspect]
     Indication: MENSTRUAL CYCLE MANAGEMENT
     Route: 048
     Dates: start: 20080201, end: 20080722
  5. DROSPIRENONE AND ETHINYL ESTRADIOL [Suspect]
     Indication: ORAL CONTRACEPTION
  6. CIPROFLOXACIN [Concomitant]
     Dosage: 0.3 %
     Dates: start: 20070120, end: 20091108
  7. ALBUTEROL [Concomitant]
     Dosage: UNK, INHALED
     Route: 048
  8. YAZ [Suspect]
     Indication: ORAL CONTRACEPTION
     Route: 048
     Dates: start: 20080201, end: 20080722
  9. YASMIN [Suspect]
     Indication: ORAL CONTRACEPTION
  10. DROSPIRENONE AND ETHINYL ESTRADIOL [Suspect]
     Indication: MENSTRUAL CYCLE MANAGEMENT
     Route: 048
     Dates: start: 20080201, end: 20080722
  11. SEREVENT [Concomitant]
     Indication: ASTHMA

REACTIONS (6)
  - PULMONARY EMBOLISM [None]
  - DYSPNOEA [None]
  - HYPOAESTHESIA [None]
  - DEEP VEIN THROMBOSIS [None]
  - SWELLING [None]
  - PAIN IN EXTREMITY [None]
